FAERS Safety Report 14148401 (Version 1)
Quarter: 2017Q4

REPORT INFORMATION
  Report Type: Other
  Country: ES (occurrence: ES)
  Receive Date: 20171101
  Receipt Date: 20171101
  Transmission Date: 20180321
  Serious: Yes (Other)
  Sender: FDA-Public Use
  Company Number: ES-ASTELLAS-2017US043832

PATIENT
  Age: 68 Year
  Sex: Female

DRUGS (1)
  1. MIRABEGRON [Suspect]
     Active Substance: MIRABEGRON
     Indication: URINARY INCONTINENCE
     Route: 048
     Dates: start: 201508, end: 201702

REACTIONS (1)
  - Hepatitis [Recovered/Resolved]

NARRATIVE: CASE EVENT DATE: 20170201
